FAERS Safety Report 8797330 (Version 1)
Quarter: 2012Q4

REPORT INFORMATION
  Report Type: 
  Country: US (occurrence: US)
  Receive Date: 20120920
  Receipt Date: 20120920
  Transmission Date: 20130627
  Serious: No
  Sender: FDA-Public Use
  Company Number: US-BAYER-2012-097510

PATIENT
  Sex: Female

DRUGS (9)
  1. ALEVE CAPLET/TABLET,MIDOL EXTENDED RELIEF CAPLET [Suspect]
     Indication: ARTHRITIS
     Dosage: 2 DF, BID
     Route: 048
  2. GLUCOSAMINE [Concomitant]
  3. MSN [Concomitant]
  4. FISH OIL [Concomitant]
  5. ICY HOT [Concomitant]
  6. TIGER BALM [Concomitant]
  7. ASPERCREME [Concomitant]
  8. CAPZASIN [Concomitant]
  9. CHONDROITIN [Concomitant]

REACTIONS (1)
  - Arthritis [None]
